FAERS Safety Report 9171183 (Version 1)
Quarter: 2013Q1

REPORT INFORMATION
  Report Type: Spontaneous
  Country: US (occurrence: None)
  Receive Date: 20130318
  Receipt Date: 20130318
  Transmission Date: 20140127
  Serious: No
  Sender: FDA-Public Use
  Company Number: None

PATIENT
  Age: 69 Year
  Sex: Male
  Weight: 77.11 kg

DRUGS (1)
  1. DOXYCYCLINE [Suspect]
     Indication: ORAL SURGERY
     Dates: start: 20130305, end: 20130310

REACTIONS (2)
  - Nausea [None]
  - Pyrexia [None]
